FAERS Safety Report 9822215 (Version 1)
Quarter: 2014Q1

REPORT INFORMATION
  Report Type: Spontaneous
  Country: KR (occurrence: KR)
  Receive Date: 20140116
  Receipt Date: 20140116
  Transmission Date: 20141002
  Serious: Yes (Other)
  Sender: FDA-Public Use
  Company Number: KR-MYLANLABS-2014S1000700

PATIENT
  Age: 51 Year
  Sex: Female

DRUGS (2)
  1. EPINEPHRINE [Suspect]
     Dosage: 1:10000 SOLUTION
     Route: 013
  2. EPINEPHRINE [Suspect]
     Dosage: 1:10000 SOLUTION
     Route: 013

REACTIONS (2)
  - Gastrointestinal ischaemia [Recovered/Resolved]
  - Accidental exposure to product [Recovered/Resolved]
